FAERS Safety Report 24178653 (Version 1)
Quarter: 2024Q3

REPORT INFORMATION
  Report Type: Report from Study
  Country: CN (occurrence: CN)
  Receive Date: 20240806
  Receipt Date: 20240806
  Transmission Date: 20241016
  Serious: Yes (Other)
  Sender: MELINTA THERAPEUTICS
  Company Number: CN-AstraZeneca-2024A174072

PATIENT

DRUGS (10)
  1. METOPROLOL SUCCINATE [Suspect]
     Active Substance: METOPROLOL SUCCINATE
     Indication: Cardiac failure chronic
     Dosage: 11.87 MILLIGRAM, QD
     Route: 048
  2. METOPROLOL SUCCINATE [Suspect]
     Active Substance: METOPROLOL SUCCINATE
     Dosage: WITHIN 1~2 WEEKS ACCORDING TO THE DISEASE TREATMENT CONDITION, THE MAXIMUM DOSE DID NOT EXCEED 19...
     Route: 048
  3. METFORMIN HYDROCHLORIDE [Suspect]
     Active Substance: METFORMIN HYDROCHLORIDE
     Indication: Type 2 diabetes mellitus
     Dosage: 0.5 GRAM, TID
     Route: 048
  4. CAPTOPRIL [Suspect]
     Active Substance: CAPTOPRIL
     Indication: Cardiac failure chronic
     Dosage: INITIAL DOSE 12.5 MG/TIME, 1 TIME/D, INCREASED TO 50 MG/TIME WITHIN 1~2 WEEKS ACCORDING TO THE DI...
     Route: 048
  5. CAPTOPRIL [Suspect]
     Active Substance: CAPTOPRIL
     Dosage: INITIAL DOSE 12.5 MG/TIME, 1 TIME/D, INCREASED TO 50 MG/TIME WITHIN 1~2 WEEKS ACCORDING TO THE DI...
     Route: 048
  6. DIGOXIN [Suspect]
     Active Substance: DIGOXIN
     Indication: Cardiac failure chronic
     Dosage: 0.25 MG/TABLET) 0.125~0.25 MG/TIME, 1 TIME/D, THE MAXIMUM DOSE DID NOT EXCEED 1.25 MG/TIME;
  7. SPIRONOLACTONE [Suspect]
     Active Substance: SPIRONOLACTONE
     Indication: Cardiac failure chronic
     Dosage: (20 MG/TABLET) 20 MG/TIME, 3 TIMES/D, THE MAXIMUM DOSE DID NOT EXCEED 120 MG/DAY
  8. SACUBITRIL\VALSARTAN [Suspect]
     Active Substance: SACUBITRIL\VALSARTAN
     Indication: Cardiac failure chronic
     Dosage: INITIAL DOSE 50 MG/TIME, 2 TIMES/D, FOLLOWED BY ADJUSTMENT BASED ON EFFICACY AND PATIENT TOLERANC...
     Route: 048
  9. SACUBITRIL\VALSARTAN [Suspect]
     Active Substance: SACUBITRIL\VALSARTAN
     Dosage: INITIAL DOSE 50 MG/TIME, 2 TIMES/D, FOLLOWED BY ADJUSTMENT BASED ON EFFICACY AND PATIENT TOLERANC...
     Route: 048
  10. SACUBITRIL\VALSARTAN [Suspect]
     Active Substance: SACUBITRIL\VALSARTAN
     Dosage: INITIAL DOSE 50 MG/TIME, 2 TIMES/D, FOLLOWED BY ADJUSTMENT BASED ON EFFICACY AND PATIENT TOLERANC...
     Route: 048

REACTIONS (1)
  - Angioedema [Unknown]
